FAERS Safety Report 15889744 (Version 1)
Quarter: 2019Q1

REPORT INFORMATION
  Report Type: Spontaneous
  Country: ES (occurrence: ES)
  Receive Date: 20190130
  Receipt Date: 20190130
  Transmission Date: 20190417
  Serious: Yes (Other)
  Sender: FDA-Public Use
  Company Number: ES-SAKK-2019SA021092AA

PATIENT
  Age: 71 Year
  Sex: Female
  Weight: 56 kg

DRUGS (1)
  1. TOUJEO [Suspect]
     Active Substance: INSULIN GLARGINE
     Indication: DIABETES MELLITUS
     Dosage: UNK
     Route: 058
     Dates: start: 20181209, end: 20181211

REACTIONS (4)
  - Nausea [Unknown]
  - Hypertensive crisis [Unknown]
  - Pruritus [Unknown]
  - Malaise [Unknown]

NARRATIVE: CASE EVENT DATE: 20181210
